FAERS Safety Report 9772345 (Version 1)
Quarter: 2013Q4

REPORT INFORMATION
  Report Type: Spontaneous
  Country: US (occurrence: US)
  Receive Date: 20131219
  Receipt Date: 20131219
  Transmission Date: 20140711
  Serious: Yes (Hospitalization)
  Sender: FDA-Public Use
  Company Number: US-ASTRAZENECA-2013SE91025

PATIENT
  Age: 65 Year
  Sex: Male
  Weight: 92.1 kg

DRUGS (3)
  1. SEROQUEL [Suspect]
     Indication: BIPOLAR DISORDER
     Route: 048
     Dates: start: 2003
  2. SEROQUEL [Suspect]
     Indication: BIPOLAR DISORDER
     Route: 048
     Dates: start: 2003
  3. FLOMAX [Concomitant]
     Indication: DYSURIA
     Route: 048
     Dates: start: 2007

REACTIONS (4)
  - Diplopia [Recovering/Resolving]
  - Cerebrovascular accident [Recovering/Resolving]
  - Blood pressure abnormal [Unknown]
  - Blood cholesterol abnormal [Unknown]
